FAERS Safety Report 4768479-3 (Version None)
Quarter: 2005Q3

REPORT INFORMATION
  Report Type: 
  Country: None (occurrence: None)
  Receive Date: 20050914
  Receipt Date: 20050617
  Transmission Date: 20060218
  Serious: Yes (Hospitalization, Disabling)
  Sender: FDA-Public Use
  Company Number: US-MERCK-0506USA02962

PATIENT
  Age: 65 Year
  Sex: Female
  Weight: 80 kg

DRUGS (5)
  1. VIOXX [Suspect]
     Indication: ARTHRITIS
     Route: 048
     Dates: start: 20010101, end: 20020608
  2. IMDUR [Concomitant]
     Route: 065
  3. ALTACE [Concomitant]
     Indication: HYPERTENSION
     Route: 065
  4. LOPRESSOR [Concomitant]
     Indication: HYPERTENSION
     Route: 065
  5. AVANDIA [Concomitant]
     Route: 065

REACTIONS (7)
  - ANKLE FRACTURE [None]
  - ASTHMA [None]
  - CARDIAC FAILURE CONGESTIVE [None]
  - CEREBROVASCULAR ACCIDENT [None]
  - HYPERTENSION [None]
  - OEDEMA PERIPHERAL [None]
  - RHINITIS ALLERGIC [None]
